FAERS Safety Report 17302228 (Version 2)
Quarter: 2020Q3

REPORT INFORMATION
  Report Type: Report from Study
  Country: NZ (occurrence: NZ)
  Receive Date: 20200122
  Receipt Date: 20200214
  Transmission Date: 20201104
  Serious: Yes (Life-Threatening, Hospitalization)
  Sender: FDA-Public Use
  Company Number: NZ-ASTRAZENECA-2020SE09811

PATIENT
  Age: 51 Year
  Sex: Female

DRUGS (21)
  1. DOXYCYCLINE. [Concomitant]
     Active Substance: DOXYCYCLINE
  2. ENOXAPARIN [Concomitant]
     Active Substance: ENOXAPARIN
  3. FOLINIC ACID [Suspect]
     Active Substance: LEUCOVORIN
     Indication: NEOPLASM MALIGNANT
     Route: 065
     Dates: start: 20190613
  4. APREPITANT. [Concomitant]
     Active Substance: APREPITANT
  5. OMEPRAZOLE. [Concomitant]
     Active Substance: OMEPRAZOLE
  6. OXALIPLATIN. [Suspect]
     Active Substance: OXALIPLATIN
     Indication: NEOPLASM MALIGNANT
     Route: 065
     Dates: start: 20190613
  7. DEXAMETHASONE. [Concomitant]
     Active Substance: DEXAMETHASONE
  8. MONALIZUMAB. [Suspect]
     Active Substance: MONALIZUMAB
     Indication: NEOPLASM MALIGNANT
     Route: 042
     Dates: start: 20190613
  9. FLUOROURACIL. [Suspect]
     Active Substance: FLUOROURACIL
     Indication: NEOPLASM MALIGNANT
     Route: 065
     Dates: start: 20190613
  10. TRAMADOL. [Concomitant]
     Active Substance: TRAMADOL
  11. MOVICOL [Concomitant]
     Active Substance: POLYETHYLENE GLYCOL 3350\POTASSIUM CHLORIDE\SODIUM BICARBONATE\SODIUM CHLORIDE
  12. STUDY PROCEDURE [Suspect]
     Active Substance: INVESTIGATIONAL PRODUCT
     Indication: NEOPLASM MALIGNANT
     Dosage: INDWELLING PORT?A?CATH FOR CHEMOTHERAPY
     Route: 065
  13. MEDI4736 [Suspect]
     Active Substance: DURVALUMAB
     Indication: NEOPLASM MALIGNANT
     Route: 042
     Dates: start: 20190613
  14. CETUXIMAB. [Suspect]
     Active Substance: CETUXIMAB
     Indication: NEOPLASM MALIGNANT
     Dosage: 400 MG/M2
     Route: 065
     Dates: start: 20190613
  15. ZOPICLONE [Concomitant]
     Active Substance: ZOPICLONE
  16. MACROGOL [Concomitant]
     Active Substance: POLYETHYLENE GLYCOLS
  17. FLUOROURACIL. [Suspect]
     Active Substance: FLUOROURACIL
     Indication: NEOPLASM MALIGNANT
     Route: 065
     Dates: start: 20190613
  18. PARACETAMOL [Concomitant]
     Active Substance: ACETAMINOPHEN
  19. MULTIVITAMIN [Concomitant]
     Active Substance: VITAMINS
  20. CETOMACROGOL [Concomitant]
     Active Substance: COSMETICS
  21. FORTISIP [Concomitant]
     Active Substance: CARBOHYDRATES\FATTY ACIDS\MINERALS\PROTEIN\VITAMINS

REACTIONS (1)
  - Superior vena cava occlusion [Not Recovered/Not Resolved]

NARRATIVE: CASE EVENT DATE: 20200119
